FAERS Safety Report 21302235 (Version 3)
Quarter: 2022Q4

REPORT INFORMATION
  Report Type: Report from Study
  Country: US (occurrence: US)
  Receive Date: 20220907
  Receipt Date: 20221104
  Transmission Date: 20230113
  Serious: Yes (Other)
  Sender: FDA-Public Use
  Company Number: US-JAZZ-2022-US-028747

PATIENT
  Sex: Female

DRUGS (1)
  1. XYWAV [Suspect]
     Active Substance: CALCIUM OXYBATE\MAGNESIUM OXYBATE\POTASSIUM OXYBATE\SODIUM OXYBATE
     Indication: Hypersomnia
     Dosage: 3.75 GRAM

REACTIONS (6)
  - Dystonia [Unknown]
  - Disorientation [Not Recovered/Not Resolved]
  - Euphoric mood [Unknown]
  - Dizziness [Not Recovered/Not Resolved]
  - Hyperhidrosis [Unknown]
  - Memory impairment [Unknown]
